FAERS Safety Report 8838275 (Version 2)
Quarter: 2015Q3

REPORT INFORMATION
  Report Type: Report from Study
  Country: US (occurrence: US)
  Receive Date: 20121012
  Receipt Date: 20150812
  Transmission Date: 20151125
  Serious: Yes (Death)
  Sender: FDA-Public Use
  Company Number: US-ROCHE-1120134

PATIENT
  Age: 52 Year
  Sex: Male
  Weight: 183 kg

DRUGS (10)
  1. NUTROPIN AQ [Suspect]
     Active Substance: SOMATROPIN
     Dosage: 7 INJECTIONS PER WEEK
     Route: 058
  2. BUMEX [Concomitant]
     Active Substance: BUMETANIDE
     Route: 065
  3. LASIX [Concomitant]
     Active Substance: FUROSEMIDE
  4. NUTROPIN AQ [Suspect]
     Active Substance: SOMATROPIN
     Dosage: 7 INJECTION PER WEEK
     Route: 058
  5. GLUCOPHAGE [Concomitant]
     Active Substance: METFORMIN HYDROCHLORIDE
     Route: 065
  6. K-DUR [Concomitant]
     Active Substance: POTASSIUM CHLORIDE
     Route: 065
  7. WELLBUTRIN [Concomitant]
     Active Substance: BUPROPION HYDROCHLORIDE
     Route: 065
  8. NUTROPIN AQ [Suspect]
     Active Substance: SOMATROPIN
     Indication: DWARFISM
     Dosage: 7 INJECTION PER WEEK
     Route: 058
  9. CARDURA [Concomitant]
     Active Substance: DOXAZOSIN MESYLATE
     Dosage: HS
     Route: 065
  10. IBUPROFEN. [Concomitant]
     Active Substance: IBUPROFEN

REACTIONS (13)
  - Nasal congestion [Unknown]
  - Weight decreased [Unknown]
  - Acanthosis nigricans [Unknown]
  - Acrochordon [Unknown]
  - Hunger [Unknown]
  - Asthenia [Unknown]
  - Muscle atrophy [Unknown]
  - Tinea cruris [Unknown]
  - Fatigue [Unknown]
  - Peripheral swelling [Unknown]
  - Death [Fatal]
  - Stasis dermatitis [Unknown]
  - Dyspnoea exertional [Unknown]

NARRATIVE: CASE EVENT DATE: 20010915
